FAERS Safety Report 15665892 (Version 1)
Quarter: 2018Q4

REPORT INFORMATION
  Report Type: Spontaneous
  Country: US (occurrence: US)
  Receive Date: 20181128
  Receipt Date: 20181128
  Transmission Date: 20190205
  Serious: Yes (Other)
  Sender: FDA-Public Use
  Company Number: US-PROCTER_AND_GAMBLE-GS18130788

PATIENT
  Age: 47 Year
  Sex: Female

DRUGS (1)
  1. OLAY SPF/UV PROTECTION NOS [Suspect]
     Active Substance: AVOBENZONE\HOMOSALATE\OCTINOXATE\OCTISALATE\OCTOCRYLENE\OXYBENZONE\TITANIUM DIOXIDE\ZINC OXIDE
     Dosage: BETWEEN A DIME TO NICKEL SIZE AMOUNT ONCE A DAY FOR ABOUT A MONTH AND A HALF
     Route: 061
     Dates: start: 201810, end: 20181121

REACTIONS (16)
  - Urticaria [Recovered/Resolved]
  - Eye swelling [Unknown]
  - Throat tightness [Recovered/Resolved]
  - Hypersensitivity [Recovering/Resolving]
  - Lip swelling [Recovering/Resolving]
  - Lip pruritus [Unknown]
  - Erythema [Recovered/Resolved]
  - Pruritus generalised [Recovered/Resolved]
  - Eye pruritus [Recovered/Resolved]
  - Pharyngeal oedema [Recovered/Resolved]
  - Paraesthesia oral [Recovered/Resolved]
  - Cyanosis [Recovered/Resolved]
  - Feeling hot [Unknown]
  - Ocular hyperaemia [Recovered/Resolved]
  - Swelling of eyelid [Recovering/Resolving]
  - Swelling face [Recovered/Resolved]

NARRATIVE: CASE EVENT DATE: 20181120
